FAERS Safety Report 4822962-0 (Version None)
Quarter: 2005Q4

REPORT INFORMATION
  Report Type: 
  Country: None (occurrence: None)
  Receive Date: 20051104
  Receipt Date: 20051021
  Transmission Date: 20060501
  Serious: Yes (Hospitalization)
  Sender: FDA-Public Use
  Company Number: 2005S1010347

PATIENT
  Sex: Female

DRUGS (3)
  1. FLURBIPROFEN [Suspect]
     Indication: NASOPHARYNGITIS
     Dosage: X1;ORAL
     Route: 048
  2. DYPHYLLINE GG [Suspect]
     Indication: NASOPHARYNGITIS
     Dosage: X1; ORAL
     Route: 048
  3. SULFAMETHAZOLE AND TRIMETHOPRIM DS [Suspect]
     Indication: NASOPHARYNGITIS
     Dosage: X1;ORAL
     Route: 048

REACTIONS (13)
  - ABDOMINAL PAIN UPPER [None]
  - ASTHENIA [None]
  - BLINDNESS TRANSIENT [None]
  - CAESAREAN SECTION [None]
  - CHEST PAIN [None]
  - DIZZINESS [None]
  - DRUG EXPOSURE DURING PREGNANCY [None]
  - DYSPNOEA [None]
  - FOETAL HEART RATE ABNORMAL [None]
  - FOETAL MOVEMENTS DECREASED [None]
  - HEART RATE INCREASED [None]
  - MEMORY IMPAIRMENT [None]
  - SHOCK [None]
